FAERS Safety Report 7793127-8 (Version None)
Quarter: 2011Q4

REPORT INFORMATION
  Report Type: 
  Country: None (occurrence: None)
  Receive Date: 20111003
  Receipt Date: 20110922
  Transmission Date: 20120403
  Serious: Yes (Other)
  Sender: FDA-Public Use
  Company Number: US-JNJFOC-20110910257

PATIENT
  Sex: Female
  Weight: 104.33 kg

DRUGS (5)
  1. REMICADE [Suspect]
     Indication: CROHN'S DISEASE
     Route: 042
  2. HYDROCODONE [Concomitant]
     Indication: FIBROMYALGIA
     Route: 048
  3. REMICADE [Suspect]
     Route: 042
     Dates: start: 20110101
  4. ASACOL [Concomitant]
     Indication: CROHN'S DISEASE
     Route: 048
  5. TRAZODONE HYDROCHLORIDE [Concomitant]
     Indication: FEELING OF RELAXATION
     Route: 048

REACTIONS (3)
  - LYME DISEASE [None]
  - UNEVALUABLE EVENT [None]
  - BLOOD PRESSURE INCREASED [None]
